FAERS Safety Report 8557140-5 (Version None)
Quarter: 2012Q3

REPORT INFORMATION
  Report Type: 
  Country: None (occurrence: None)
  Receive Date: 20120801
  Receipt Date: 20120726
  Transmission Date: 20120928
  Serious: Yes (Death)
  Sender: FDA-Public Use
  Company Number: JP-PFIZER INC-2012175506

PATIENT
  Age: 63 Year
  Sex: Male

DRUGS (1)
  1. ADRIAMYCIN PFS [Suspect]
     Indication: LYMPHOMA
     Route: 042

REACTIONS (9)
  - NEUTROPHIL COUNT DECREASED [None]
  - MONOCYTE COUNT DECREASED [None]
  - ZYGOMYCOSIS [None]
  - DEVICE RELATED INFECTION [None]
  - CANDIDA TEST POSITIVE [None]
  - WHITE BLOOD CELL COUNT DECREASED [None]
  - PYREXIA [None]
  - RESPIRATORY FAILURE [None]
  - PULMONARY HAEMORRHAGE [None]
